FAERS Safety Report 4606753-1 (Version None)
Quarter: 2005Q1

REPORT INFORMATION
  Report Type: 
  Country: None (occurrence: None)
  Receive Date: 20050314
  Receipt Date: 20050303
  Transmission Date: 20050727
  Serious: Yes (Other)
  Sender: FDA-Public Use
  Company Number: DE-ABBOTT-05I-062-0292831-00

PATIENT
  Age: 38 Year
  Sex: Male

DRUGS (3)
  1. CIPRALEX FILM-COATED TABLETS [Suspect]
     Indication: DRUG USE FOR UNKNOWN INDICATION
     Dates: start: 20041001
  2. CIPRALEX FILM-COATED TABLETS [Suspect]
  3. HEPARIN [Concomitant]
     Indication: DRUG USE FOR UNKNOWN INDICATION

REACTIONS (2)
  - HAEMATOMA [None]
  - POST PROCEDURAL HAEMORRHAGE [None]
